FAERS Safety Report 7790178-4 (Version None)
Quarter: 2011Q3

REPORT INFORMATION
  Report Type: 
  Country: None (occurrence: None)
  Receive Date: 20110930
  Receipt Date: 20101020
  Transmission Date: 20111222
  Serious: Yes (Other)
  Sender: FDA-Public Use
  Company Number: US-ASTRAZENECA-2007UW19694

PATIENT
  Age: 62 Year
  Sex: Female
  Weight: 52.6 kg

DRUGS (1)
  1. ARIMIDEX [Suspect]
     Indication: BREAST CANCER
     Route: 048

REACTIONS (4)
  - MUSCULOSKELETAL CHEST PAIN [None]
  - THERAPEUTIC RESPONSE UNEXPECTED [None]
  - BREAST PAIN [None]
  - COUNTERFEIT DRUG ADMINISTERED [None]
